FAERS Safety Report 9170543 (Version 1)
Quarter: 2013Q1

REPORT INFORMATION
  Report Type: Spontaneous
  Country: US (occurrence: None)
  Receive Date: 20130307
  Receipt Date: 20130307
  Transmission Date: 20140127
  Serious: Yes (Life-Threatening, Other)
  Sender: FDA-Public Use
  Company Number: 13-00863

PATIENT
  Age: 74 Year
  Sex: Female

DRUGS (5)
  1. ALBUTEROL SULFATE [Suspect]
     Indication: DYSPNOEA
     Dosage: 1 VIAL ONCE 054
     Dates: start: 20130109
  2. UNIDENTIFIED ALLERGY MEDICATION [Concomitant]
  3. LOPRESSOR [Concomitant]
  4. HYGROTON [Concomitant]
  5. NEURONTIN [Concomitant]

REACTIONS (2)
  - Convulsion [None]
  - Headache [None]
